FAERS Safety Report 26046010 (Version 1)
Quarter: 2025Q4

REPORT INFORMATION
  Report Type: Spontaneous
  Country: US (occurrence: None)
  Receive Date: 20251113
  Receipt Date: 20251113
  Transmission Date: 20260117
  Serious: Yes (Other)
  Sender: FDA-CTU
  Company Number: None

PATIENT
  Age: 68 Year
  Sex: Female

DRUGS (3)
  1. ORENCIA [Suspect]
     Active Substance: ABATACEPT
     Dosage: FREQUENCY : WEEKLY;?
  2. PREDNISONE [Suspect]
     Active Substance: PREDNISONE
  3. CELEBREX [Suspect]
     Active Substance: CELECOXIB

REACTIONS (6)
  - Therapy interrupted [None]
  - Rheumatoid arthritis [None]
  - Pain [None]
  - Discomfort [None]
  - Rash macular [None]
  - Psoriasis [None]
